FAERS Safety Report 10546016 (Version 1)
Quarter: 2014Q4

REPORT INFORMATION
  Report Type: Spontaneous
  Country: CA (occurrence: CA)
  Receive Date: 20141027
  Receipt Date: 20141027
  Transmission Date: 20150529
  Serious: Yes (Hospitalization)
  Sender: FDA-Public Use
  Company Number: CA-TEVA-517239USA

PATIENT
  Age: 79 Year
  Sex: Female

DRUGS (3)
  1. GALANTAMINE [Suspect]
     Active Substance: GALANTAMINE
     Indication: DEMENTIA
     Dosage: 8MG DAILY
     Route: 065
  2. RISPERIDONE. [Concomitant]
     Active Substance: RISPERIDONE
     Indication: BIPOLAR I DISORDER
     Route: 065
  3. VALPROATE SEMISODIUM [Concomitant]
     Active Substance: DIVALPROEX SODIUM
     Indication: BIPOLAR I DISORDER
     Route: 065

REACTIONS (1)
  - Mania [Recovered/Resolved]
